FAERS Safety Report 5691492-9 (Version None)
Quarter: 2008Q1

REPORT INFORMATION
  Report Type: 
  Country: None (occurrence: None)
  Receive Date: 20080331
  Receipt Date: 20080317
  Transmission Date: 20080703
  Serious: No
  Sender: FDA-Public Use
  Company Number: US022753

PATIENT
  Age: 82 Year
  Sex: Male
  Weight: 115.6672 kg

DRUGS (2)
  1. FENTORA [Suspect]
     Indication: PAIN
     Dosage: 200 UG QID BUCCAL
     Route: 002
     Dates: start: 20080202, end: 20080209
  2. MORPHINE [Concomitant]

REACTIONS (3)
  - DRUG PRESCRIBING ERROR [None]
  - INSOMNIA [None]
  - TREMOR [None]
